APPROVED DRUG PRODUCT: CARBAMAZEPINE
Active Ingredient: CARBAMAZEPINE
Strength: 100MG
Dosage Form/Route: TABLET, EXTENDED RELEASE;ORAL
Application: A212524 | Product #001 | TE Code: AB
Applicant: TORRENT PHARMACEUTICALS LTD
Approved: Jan 13, 2025 | RLD: No | RS: No | Type: RX